FAERS Safety Report 23100487 (Version 1)
Quarter: 2023Q4

REPORT INFORMATION
  Report Type: Spontaneous
  Country: US (occurrence: US)
  Receive Date: 20231024
  Receipt Date: 20231024
  Transmission Date: 20240109
  Serious: Yes (Other)
  Sender: FDA-Public Use
  Company Number: US-AMGEN-USASP2023186941

PATIENT
  Age: 64 Year
  Sex: Female

DRUGS (2)
  1. EVENITY [Suspect]
     Active Substance: ROMOSOZUMAB-AQQG
     Indication: Product used for unknown indication
     Dosage: UNK
     Route: 065
  2. AYVAKIT [Concomitant]
     Active Substance: AVAPRITINIB
     Indication: Systemic mastocytosis
     Dosage: 25 MILLIGRAM, QD
     Route: 065
     Dates: start: 20230720

REACTIONS (3)
  - Cellulitis [Unknown]
  - Fatigue [Unknown]
  - Somnolence [Unknown]

NARRATIVE: CASE EVENT DATE: 20230801
